FAERS Safety Report 8267044-3 (Version None)
Quarter: 2012Q2

REPORT INFORMATION
  Report Type: 
  Country: None (occurrence: None)
  Receive Date: 20120409
  Receipt Date: 20120403
  Transmission Date: 20120825
  Serious: No
  Sender: FDA-Public Use
  Company Number: US-PFIZER INC-2012085435

PATIENT
  Sex: Male
  Weight: 95.238 kg

DRUGS (2)
  1. SUTENT [Suspect]
     Indication: METASTATIC RENAL CELL CARCINOMA
     Dosage: 50 MG, DAILY, 1 CAP DAILY
  2. SUTENT [Suspect]
     Dosage: 37.5 MG, DAILY, 2 CAPS DAILY

REACTIONS (3)
  - HYPOGEUSIA [None]
  - DECREASED APPETITE [None]
  - NAUSEA [None]
